FAERS Safety Report 9069038 (Version 1)
Quarter: 2013Q1

REPORT INFORMATION
  Report Type: Spontaneous
  Country: CA (occurrence: CA)
  Receive Date: 20130215
  Receipt Date: 20130215
  Transmission Date: 20140127
  Serious: Yes (Other)
  Sender: FDA-Public Use
  Company Number: CA-AMGEN-CANSP2013009627

PATIENT
  Sex: Female

DRUGS (2)
  1. PROLIA [Suspect]
     Indication: OSTEOPOROSIS
     Dosage: 60 MG, UNK
     Dates: start: 20111204
  2. IRON [Concomitant]
     Indication: ANGIOEDEMA

REACTIONS (4)
  - Liposarcoma [Unknown]
  - Intestinal haemorrhage [Unknown]
  - Blood parathyroid hormone abnormal [Unknown]
  - Vitamin D abnormal [Unknown]
